FAERS Safety Report 6997272-6 (Version None)
Quarter: 2010Q3

REPORT INFORMATION
  Report Type: 
  Country: None (occurrence: None)
  Receive Date: 20100918
  Receipt Date: 20090921
  Transmission Date: 20110219
  Serious: No
  Sender: FDA-Public Use
  Company Number: US-WYE-H11121409

PATIENT
  Sex: Female
  Weight: 53.57 kg

DRUGS (4)
  1. PRISTIQ [Suspect]
     Indication: DEPRESSION
     Route: 048
     Dates: start: 20090909
  2. LUNESTA [Concomitant]
  3. FENTANYL CITRATE [Concomitant]
  4. TEMAZEPAM [Concomitant]

REACTIONS (5)
  - AFFECT LABILITY [None]
  - ASTHENIA [None]
  - CRYING [None]
  - NAUSEA [None]
  - SOMNOLENCE [None]
